FAERS Safety Report 7261624-X (Version None)
Quarter: 2011Q1

REPORT INFORMATION
  Report Type: 
  Country: None (occurrence: None)
  Receive Date: 20110130
  Receipt Date: 20101022
  Transmission Date: 20110831
  Serious: No
  Sender: FDA-Public Use
  Company Number: US-ABBOTT-10P-163-0680518-00

PATIENT
  Age: 46 Year
  Sex: Female

DRUGS (4)
  1. NORTRYPTALINE [Concomitant]
     Indication: CROHN'S DISEASE
  2. HUMIRA [Suspect]
  3. AZOTHROPINE [Concomitant]
     Indication: CROHN'S DISEASE
  4. HUMIRA [Suspect]
     Indication: CROHN'S DISEASE
     Dates: start: 20101021

REACTIONS (1)
  - PAIN [None]
